FAERS Safety Report 6673398-1 (Version None)
Quarter: 2010Q2

REPORT INFORMATION
  Report Type: 
  Country: None (occurrence: None)
  Receive Date: 20100408
  Receipt Date: 20100329
  Transmission Date: 20101027
  Serious: Yes (Hospitalization)
  Sender: FDA-Public Use
  Company Number: DE-PFIZER INC-2010039438

PATIENT
  Age: 78 Year
  Sex: Female
  Weight: 73 kg

DRUGS (1)
  1. ZYVOXID [Suspect]
     Indication: WOUND INFECTION STAPHYLOCOCCAL
     Dosage: 600 MG, 1X/DAY
     Route: 048
     Dates: start: 20100101, end: 20100101

REACTIONS (2)
  - ACUTE HEPATIC FAILURE [None]
  - HEPATIC ENZYME INCREASED [None]
